FAERS Safety Report 19991980 (Version 1)
Quarter: 2021Q4

REPORT INFORMATION
  Report Type: Spontaneous
  Country: BE (occurrence: BE)
  Receive Date: 20211026
  Receipt Date: 20211026
  Transmission Date: 20220303
  Serious: Yes (Hospitalization, Other)
  Sender: FDA-Public Use
  Company Number: BE-BRISTOL-MYERS SQUIBB COMPANY-BMS-2021-111591

PATIENT
  Age: 71 Year
  Sex: Male

DRUGS (11)
  1. IPILIMUMAB [Suspect]
     Active Substance: IPILIMUMAB
     Indication: Metastatic malignant melanoma
     Dosage: UNK
     Route: 065
     Dates: start: 202010, end: 202101
  2. NIVOLUMAB [Suspect]
     Active Substance: NIVOLUMAB
     Indication: Metastatic malignant melanoma
     Dosage: UNK
     Route: 065
     Dates: start: 202010, end: 20210128
  3. SOLU-MEDROL [Concomitant]
     Active Substance: METHYLPREDNISOLONE SODIUM SUCCINATE
     Indication: Product used for unknown indication
     Dosage: 1 GRAM
     Route: 065
     Dates: start: 20210302, end: 20210307
  4. METHYLPREDNISOLONE [Concomitant]
     Active Substance: METHYLPREDNISOLONE
     Indication: Product used for unknown indication
     Dosage: 2 MILLIGRAM/KILOGRAM
     Route: 048
  5. AMLODIPINE [Concomitant]
     Active Substance: AMLODIPINE BESYLATE
     Indication: Product used for unknown indication
     Dosage: 5 MILLIGRAM, QD
     Route: 065
  6. ASPIRIN [Concomitant]
     Active Substance: ASPIRIN
     Indication: Product used for unknown indication
     Dosage: 80 MILLIGRAM, QD
     Route: 065
  7. INDAPAMIDE\PERINDOPRIL ARGININE [Concomitant]
     Active Substance: INDAPAMIDE\PERINDOPRIL ARGININE
     Indication: Product used for unknown indication
     Dosage: 10/2.5 MG 1/DAY
     Route: 065
  8. NADROPARIN CALCIUM [Concomitant]
     Active Substance: NADROPARIN CALCIUM
     Indication: Product used for unknown indication
     Dosage: 0.4 MILLIGRAM, QD
     Route: 058
  9. PANTOPRAZOLE [Concomitant]
     Active Substance: PANTOPRAZOLE
     Indication: Product used for unknown indication
     Dosage: 40 MILLIGRAM
     Route: 065
  10. TAMSULOSIN [Concomitant]
     Active Substance: TAMSULOSIN
     Indication: Product used for unknown indication
     Dosage: 0.4 MILLIGRAM, QD
     Route: 065
  11. SCHERIPROCT [CINCHOCAINE HYDROCHLORIDE;PREDNISOLONE CAPROATE] [Concomitant]
     Indication: Product used for unknown indication
     Dosage: AS NEEDED
     Route: 065

REACTIONS (3)
  - Central nervous system vasculitis [Unknown]
  - Autoimmune encephalopathy [Unknown]
  - Adrenal insufficiency [Unknown]

NARRATIVE: CASE EVENT DATE: 20201101
